FAERS Safety Report 10505474 (Version 2)
Quarter: 2014Q4

REPORT INFORMATION
  Report Type: Report from Study
  Country: US (occurrence: US)
  Receive Date: 20141008
  Receipt Date: 20141031
  Transmission Date: 20150528
  Serious: Yes (Death, Hospitalization)
  Sender: FDA-Public Use
  Company Number: US-MERCK-1410USA003055

PATIENT
  Age: 67 Year
  Sex: Female

DRUGS (16)
  1. LISINOPRIL. [Concomitant]
     Active Substance: LISINOPRIL
     Indication: HYPERTENSION
     Dosage: UNK, QD, STREGTH 40 MG, TOTAL DAILY DOSE 40MG
     Route: 048
     Dates: start: 20140630
  2. PEMBROLIZUMAB. [Suspect]
     Active Substance: PEMBROLIZUMAB
     Indication: METASTATIC MALIGNANT MELANOMA
     Dosage: 2 MG/KG, Q3W
     Route: 042
     Dates: start: 20140912, end: 20140912
  3. ZOLPIDEM TARTRATE. [Concomitant]
     Active Substance: ZOLPIDEM TARTRATE
     Indication: INSOMNIA
     Dosage: UNK, QHS, STREGTH 5-10 MG, TOTAL DAILY DOSE 5-10 MG
     Route: 048
     Dates: start: 20140913
  4. MIRALAX [Concomitant]
     Active Substance: POLYETHYLENE GLYCOL 3350
     Indication: CONSTIPATION
     Dosage: UNK, QD PRN, STREGTH 17 G, TOTAL DAILY DOSE 17 G
     Route: 048
     Dates: start: 20140625
  5. SENNOSIDES. [Concomitant]
     Active Substance: SENNOSIDES
     Indication: CONSTIPATION
     Dosage: UNK, BID PRN, STREGTH 2 TAB, TOTAL DAILY DOSE 4 TAB
     Route: 048
     Dates: start: 20140801
  6. COLACE [Concomitant]
     Active Substance: DOCUSATE SODIUM
     Indication: CONSTIPATION
     Dosage: UNK, QAM, STRENGTH 100 MG, TOTAL DAILY DOSE 100 MG
     Route: 048
     Dates: start: 20140307
  7. LABETALOL HYDROCHLORIDE. [Concomitant]
     Active Substance: LABETALOL HYDROCHLORIDE
     Indication: HYPERTENSION
     Dosage: UNK, TID, STREGTH 600 MG, TOTAL DAILY DOSE 1800 MG
     Route: 048
     Dates: start: 20140801
  8. LORAZEPAM. [Concomitant]
     Active Substance: LORAZEPAM
     Indication: INSOMNIA
  9. ACETAMINOPHEN. [Concomitant]
     Active Substance: ACETAMINOPHEN
     Indication: PAIN
     Dosage: UNK, PRN, STRENGTH 650 MG
     Route: 048
     Dates: start: 20140801
  10. PROCHLORPERAZINE MALEATE. [Concomitant]
     Active Substance: PROCHLORPERAZINE MALEATE
     Indication: NAUSEA
     Dosage: UNK, TID PRN, STREGTH 5 MG, TOTAL DAILY DOSE 15 MG
     Route: 048
     Dates: start: 20140625
  11. LORAZEPAM. [Concomitant]
     Active Substance: LORAZEPAM
     Indication: NAUSEA
  12. LORAZEPAM. [Concomitant]
     Active Substance: LORAZEPAM
     Indication: VOMITING
  13. AMLODIPINE [Concomitant]
     Active Substance: AMLODIPINE BESYLATE
     Indication: HYPERTENSION
     Dosage: UNK, QD, STRENGTH 5 MG, TOTAL DAILY DOSE 5 MG
     Route: 048
     Dates: start: 20140801
  14. ACETAMINOPHEN. [Concomitant]
     Active Substance: ACETAMINOPHEN
     Indication: PYREXIA
  15. BISACODYL. [Concomitant]
     Active Substance: BISACODYL
     Indication: CONSTIPATION
     Dosage: UNK, QD, STRENGTH 10 MG, TOTAL DAILY DOSE 10 MG
     Route: 048
     Dates: start: 20140801
  16. LORAZEPAM. [Concomitant]
     Active Substance: LORAZEPAM
     Indication: ANXIETY
     Dosage: UNK, Q4H PRN, STREGTH 0.25 MG, TOTAL DAILY DOSE 1.5 MG
     Route: 048
     Dates: start: 20130711

REACTIONS (2)
  - Malignant neoplasm progression [Fatal]
  - Failure to thrive [Recovered/Resolved with Sequelae]

NARRATIVE: CASE EVENT DATE: 20140924
